FAERS Safety Report 9560286 (Version 1)
Quarter: 2013Q3

REPORT INFORMATION
  Report Type: Report from Study
  Country: CA (occurrence: CA)
  Receive Date: 20130927
  Receipt Date: 20130927
  Transmission Date: 20140515
  Serious: Yes (Other)
  Sender: FDA-Public Use
  Company Number: CA-JNJFOC-20130915729

PATIENT
  Sex: Female
  Weight: 64.86 kg

DRUGS (1)
  1. STELARA [Suspect]
     Indication: PSORIASIS
     Route: 058
     Dates: start: 201305

REACTIONS (2)
  - Cystitis [Not Recovered/Not Resolved]
  - Psoriasis [Not Recovered/Not Resolved]
